FAERS Safety Report 9559576 (Version 2)
Quarter: 2013Q4

REPORT INFORMATION
  Report Type: Spontaneous
  Country: US (occurrence: None)
  Receive Date: 20130925
  Receipt Date: 20131003
  Transmission Date: 20140711
  Serious: Yes (Other)
  Sender: FDA-Public Use
  Company Number: 2013EXPUS00135

PATIENT
  Age: 29 Year
  Sex: Female

DRUGS (1)
  1. EXPAREL (BUPIVACAINE) LIPOSOME INJECTABLE SUSPENSION, MG/ML [Suspect]
     Indication: POSTOPERATIVE ANALGESIA
     Dosage: 20 CCS, 1X, UNK
     Dates: start: 20130916, end: 20130916

REACTIONS (1)
  - Supraventricular extrasystoles [None]
